FAERS Safety Report 18941387 (Version 1)
Quarter: 2021Q1

REPORT INFORMATION
  Report Type: Spontaneous
  Country: A1 (occurrence: A1)
  Receive Date: 20210225
  Receipt Date: 20210225
  Transmission Date: 20210420
  Serious: Yes (Life-Threatening, Hospitalization, Other)
  Sender: FDA-Public Use
  Company Number: A1-AVION PHARMACEUTICALS, LLC-2107332

PATIENT
  Age: 34 Year
  Sex: Male

DRUGS (1)
  1. GLOPERBA [Suspect]
     Active Substance: COLCHICINE
     Indication: GOUT
     Route: 048

REACTIONS (12)
  - Muscular weakness [Unknown]
  - Lethargy [Unknown]
  - Hyponatraemia [Unknown]
  - Dysstasia [Unknown]
  - Vomiting [Unknown]
  - Shock [Unknown]
  - Nausea [Unknown]
  - Unevaluable event [Unknown]
  - Dysarthria [Unknown]
  - Osmotic demyelination syndrome [Unknown]
  - Poisoning [Unknown]
  - Dyskinesia [Unknown]
